FAERS Safety Report 9310421 (Version 1)
Quarter: 2013Q2

REPORT INFORMATION
  Report Type: Spontaneous
  Country: US (occurrence: US)
  Receive Date: 20130527
  Receipt Date: 20130527
  Transmission Date: 20140414
  Serious: No
  Sender: FDA-Public Use
  Company Number: US-PFIZER INC-2013158759

PATIENT
  Sex: Male

DRUGS (1)
  1. VIAGRA [Suspect]
     Dosage: 100 MG, UNK

REACTIONS (3)
  - Drug ineffective [Unknown]
  - Drug effect decreased [Unknown]
  - Product colour issue [Unknown]
